FAERS Safety Report 4518038-2 (Version None)
Quarter: 2004Q4

REPORT INFORMATION
  Report Type: 
  Country: None (occurrence: None)
  Receive Date: 20041203
  Receipt Date: 20041001
  Transmission Date: 20050328
  Serious: Yes (Other)
  Sender: FDA-Public Use
  Company Number: US-GLAXOSMITHKLINE-A0528438A

PATIENT
  Sex: Male

DRUGS (1)
  1. PAXIL [Suspect]
     Indication: DEPRESSION
     Route: 048

REACTIONS (19)
  - ABNORMAL BEHAVIOUR [None]
  - ABNORMAL DREAMS [None]
  - ADVERSE EVENT [None]
  - AFFECT LABILITY [None]
  - AGGRESSION [None]
  - DEPRESSION [None]
  - DISTURBANCE IN ATTENTION [None]
  - DRUG DEPENDENCE [None]
  - FEELING ABNORMAL [None]
  - HALLUCINATION [None]
  - MANIA [None]
  - MURDER [None]
  - NIGHT SWEATS [None]
  - PARANOIA [None]
  - PERSONALITY CHANGE [None]
  - PERSONALITY DISORDER [None]
  - SCHIZOPHRENIA, PARANOID TYPE [None]
  - SUICIDAL IDEATION [None]
  - THINKING ABNORMAL [None]
